FAERS Safety Report 5978987-5 (Version None)
Quarter: 2008Q4

REPORT INFORMATION
  Report Type: 
  Country: None (occurrence: None)
  Receive Date: 20081126
  Receipt Date: 20081110
  Transmission Date: 20090506
  Serious: Yes (Disabling)
  Sender: FDA-Public Use
  Company Number: 20606

PATIENT
  Age: 46 Year
  Sex: Female

DRUGS (4)
  1. FLUOROURACIL [Suspect]
     Dosage: 1200 MG IV
     Route: 042
     Dates: start: 20080814
  2. METHOTREXATE [Suspect]
     Dosage: 85 MG IV
     Route: 042
     Dates: start: 20080814
  3. CYCLOPHOSPHAMIDE [Suspect]
     Dosage: 1200 MG IV
     Route: 042
     Dates: start: 20080614
  4. NEULASTA [Suspect]
     Dates: start: 20080612

REACTIONS (1)
  - DEAFNESS [None]
